FAERS Safety Report 9207699 (Version 2)
Quarter: 2013Q4

REPORT INFORMATION
  Report Type: Spontaneous
  Country: US (occurrence: US)
  Receive Date: 20130403
  Receipt Date: 20131216
  Transmission Date: 20140711
  Serious: Yes (Death, Hospitalization, Other)
  Sender: FDA-Public Use
  Company Number: US-009507513-0602USA03407

PATIENT
  Sex: Female
  Weight: 108.86 kg

DRUGS (16)
  1. VIOXX [Suspect]
     Dosage: 25 MG, BID
     Route: 048
     Dates: start: 2001, end: 20040930
  2. VIOXX [Suspect]
     Dosage: 50 MG, BID
     Route: 048
     Dates: start: 2001, end: 20040930
  3. VIOXX [Suspect]
     Dosage: 50 MG, QD
     Route: 048
     Dates: start: 20030123, end: 20030125
  4. TYLENOL [Concomitant]
  5. ADVIL [Concomitant]
  6. ULTRACET [Concomitant]
  7. PREMARIN [Concomitant]
     Dosage: 0.625 MG, UNK
  8. DILTIAZEM [Concomitant]
     Dosage: 360 MG, UNK
  9. PLAVIX [Concomitant]
  10. PRINIVIL [Concomitant]
  11. METOPROLOL [Concomitant]
  12. ASPIRIN [Concomitant]
  13. MK-0152 [Concomitant]
  14. MK-9378 [Concomitant]
  15. BENADRYL [Concomitant]
  16. SULAR [Concomitant]

REACTIONS (34)
  - Lacunar infarction [Unknown]
  - Troponin [Unknown]
  - Cerebrovascular accident [Fatal]
  - Dysphagia [Fatal]
  - Failure to thrive [Fatal]
  - Cardiopulmonary failure [Fatal]
  - Myocardial infarction [Unknown]
  - Type 2 diabetes mellitus [Unknown]
  - Hypersensitivity [Recovered/Resolved]
  - Arthritis [Unknown]
  - Chest pain [Unknown]
  - Coronary artery disease [Unknown]
  - Prescribed overdose [Unknown]
  - Fall [Unknown]
  - Viral infection [Unknown]
  - Cardiomegaly [Unknown]
  - Meningioma [Unknown]
  - Pollakiuria [Unknown]
  - Nasal dryness [Unknown]
  - Dry eye [Unknown]
  - Rheumatoid arthritis [Unknown]
  - Hypertensive heart disease [Unknown]
  - Skin hyperpigmentation [Unknown]
  - Tendonitis [Unknown]
  - Wrong technique in drug usage process [Unknown]
  - Epistaxis [Unknown]
  - Headache [Unknown]
  - Osteoarthritis [Unknown]
  - Victim of abuse [Unknown]
  - Eating disorder [Unknown]
  - General physical health deterioration [Unknown]
  - Rash [Unknown]
  - Hypertension [Unknown]
  - Dry mouth [Unknown]
